FAERS Safety Report 19512411 (Version 2)
Quarter: 2021Q3

REPORT INFORMATION
  Report Type: Spontaneous
  Country: US (occurrence: US)
  Receive Date: 20210709
  Receipt Date: 20210902
  Transmission Date: 20211014
  Serious: Yes (Other)
  Sender: FDA-Public Use
  Company Number: US-JNJFOC-20210703477

PATIENT
  Age: 5 Decade
  Sex: Female

DRUGS (9)
  1. ELMIRON [Suspect]
     Active Substance: PENTOSAN POLYSULFATE SODIUM
     Route: 048
     Dates: start: 2008, end: 2014
  2. LORAZEPAM. [Concomitant]
     Active Substance: LORAZEPAM
     Indication: CYSTITIS INTERSTITIAL
     Dates: start: 2015
  3. ELMIRON [Suspect]
     Active Substance: PENTOSAN POLYSULFATE SODIUM
     Indication: CYSTITIS INTERSTITIAL
     Route: 048
     Dates: start: 2007
  4. ELMIRON [Suspect]
     Active Substance: PENTOSAN POLYSULFATE SODIUM
     Route: 048
     Dates: end: 2018
  5. LISINOPRIL. [Concomitant]
     Active Substance: LISINOPRIL
     Indication: BLOOD PRESSURE MEASUREMENT
     Dates: start: 2017
  6. CITALOPRAM [Concomitant]
     Active Substance: CITALOPRAM HYDROBROMIDE
     Dates: start: 2007, end: 2014
  7. ZYRTEC [Concomitant]
     Active Substance: CETIRIZINE HYDROCHLORIDE
     Indication: MULTIPLE ALLERGIES
     Dates: start: 2014
  8. PRAVASTATIN. [Concomitant]
     Active Substance: PRAVASTATIN
     Indication: BLOOD CHOLESTEROL
     Dates: start: 2011
  9. OMEPRAZOLE. [Concomitant]
     Active Substance: OMEPRAZOLE
     Indication: DYSPEPSIA
     Dates: start: 2006

REACTIONS (4)
  - Vision blurred [Unknown]
  - Delayed dark adaptation [Unknown]
  - Visual impairment [Unknown]
  - Eye injury [Unknown]

NARRATIVE: CASE EVENT DATE: 2010
